FAERS Safety Report 9596726 (Version 3)
Quarter: 2014Q2

REPORT INFORMATION
  Report Type: Report from Study
  Country: GB (occurrence: GB)
  Receive Date: 20131004
  Receipt Date: 20140606
  Transmission Date: 20141212
  Serious: Yes (Hospitalization)
  Sender: FDA-Public Use
  Company Number: GB-GLAXOSMITHKLINE-B0926302A

PATIENT
  Age: 82 Year
  Sex: Female

DRUGS (1)
  1. GSK2118436 [Suspect]
     Indication: METASTATIC MALIGNANT MELANOMA
     Dosage: 150MG TWICE PER DAY
     Route: 048
     Dates: start: 20130919

REACTIONS (2)
  - Pyrexia [Recovered/Resolved]
  - Confusional state [Recovered/Resolved]
